FAERS Safety Report 10655539 (Version 1)
Quarter: 2014Q4

REPORT INFORMATION
  Report Type: Spontaneous
  Country: US (occurrence: None)
  Receive Date: 20141215
  Receipt Date: 20141215
  Transmission Date: 20150529
  Serious: No
  Sender: FDA-Public Use
  Company Number: None

PATIENT
  Age: 30 Year
  Sex: Male
  Weight: 67.13 kg

DRUGS (1)
  1. FAMCYCLOVIR [Suspect]
     Active Substance: FAMCICLOVIR
     Indication: HERPES ZOSTER
     Dosage: 1 TABLET
     Route: 048
     Dates: start: 20141124, end: 20141129

REACTIONS (5)
  - Malaise [None]
  - Diarrhoea [None]
  - Flatulence [None]
  - Headache [None]
  - Middle insomnia [None]

NARRATIVE: CASE EVENT DATE: 20141127
